FAERS Safety Report 6878078-5 (Version None)
Quarter: 2010Q2

REPORT INFORMATION
  Report Type: 
  Country: None (occurrence: None)
  Receive Date: 20100616
  Receipt Date: 20090708
  Transmission Date: 20101027
  Serious: No
  Sender: FDA-Public Use
  Company Number: DSA_33986_2009

PATIENT
  Sex: Male

DRUGS (10)
  1. XENAZINE [Suspect]
     Indication: TARDIVE DYSKINESIA
     Dosage: (12.5 MG, FREQUENCY UNKNOWN ORAL), (12.5 MG, FREQUENCY UNKNOWN), (12.5 MG 5X/DAY), (12.5 MG TID)
     Route: 048
     Dates: start: 20090101, end: 20090101
  2. XENAZINE [Suspect]
     Indication: TARDIVE DYSKINESIA
     Dosage: (12.5 MG, FREQUENCY UNKNOWN ORAL), (12.5 MG, FREQUENCY UNKNOWN), (12.5 MG 5X/DAY), (12.5 MG TID)
     Route: 048
     Dates: start: 20090101, end: 20090101
  3. XENAZINE [Suspect]
     Indication: TARDIVE DYSKINESIA
     Dosage: (12.5 MG, FREQUENCY UNKNOWN ORAL), (12.5 MG, FREQUENCY UNKNOWN), (12.5 MG 5X/DAY), (12.5 MG TID)
     Route: 048
     Dates: start: 20090401, end: 20090101
  4. XENAZINE [Suspect]
     Indication: TARDIVE DYSKINESIA
     Dosage: (12.5 MG, FREQUENCY UNKNOWN ORAL), (12.5 MG, FREQUENCY UNKNOWN), (12.5 MG 5X/DAY), (12.5 MG TID)
     Route: 048
     Dates: start: 20090601, end: 20090101
  5. ZOCOR [Concomitant]
  6. SEROQUEL [Concomitant]
  7. KLONOPIN [Concomitant]
  8. PREVACID [Concomitant]
  9. ARICEPT [Concomitant]
  10. M.V.I. [Concomitant]

REACTIONS (5)
  - AGGRESSION [None]
  - DEPRESSION [None]
  - MOOD SWINGS [None]
  - MUSCULOSKELETAL STIFFNESS [None]
  - TONGUE DISORDER [None]
